FAERS Safety Report 7455711-0 (Version None)
Quarter: 2011Q2

REPORT INFORMATION
  Report Type: 
  Country: None (occurrence: None)
  Receive Date: 20110503
  Receipt Date: 20110421
  Transmission Date: 20111010
  Serious: Yes (Hospitalization, Disabling, Other)
  Sender: FDA-Public Use
  Company Number: FR-ACTELION-A-CH2010-36737

PATIENT
  Sex: Female

DRUGS (3)
  1. ZAVESCA [Suspect]
     Indication: NIEMANN-PICK DISEASE
     Dosage: 50 MG, BID
     Route: 048
     Dates: start: 20090722
  2. ZAVESCA [Suspect]
     Dosage: 100 MG, BID
     Route: 048
     Dates: start: 20100613
  3. ZAVESCA [Suspect]
     Dosage: 250 MG, QD
     Route: 048
     Dates: start: 20091015, end: 20100611

REACTIONS (8)
  - VOMITING [None]
  - NAUSEA [None]
  - DECREASED APPETITE [None]
  - WEIGHT DECREASED [None]
  - GROWTH RETARDATION [None]
  - DIARRHOEA [None]
  - GASTROINTESTINAL DISORDER [None]
  - ENTERAL NUTRITION [None]
